FAERS Safety Report 17153532 (Version 1)
Quarter: 2019Q4

REPORT INFORMATION
  Report Type: Report from Study
  Country: US (occurrence: US)
  Receive Date: 20191213
  Receipt Date: 20191213
  Transmission Date: 20200122
  Serious: Yes (Hospitalization, Other)
  Sender: FDA-Public Use
  Company Number: US-ELI_LILLY_AND_COMPANY-US201911000094

PATIENT
  Age: 79 Year
  Sex: Female

DRUGS (1)
  1. TERIPARATIDE [Suspect]
     Active Substance: TERIPARATIDE
     Indication: PRODUCT USED FOR UNKNOWN INDICATION
     Dosage: UNK UNK, UNKNOWN
     Route: 065
     Dates: start: 20180803

REACTIONS (8)
  - Pneumonia [Recovered/Resolved]
  - Bronchitis [Recovered/Resolved]
  - Haemoglobin decreased [Unknown]
  - Weight decreased [Unknown]
  - Asthma [Recovered/Resolved]
  - Viral infection [Unknown]
  - Dehydration [Unknown]
  - Dysphagia [Unknown]

NARRATIVE: CASE EVENT DATE: 20191023
